FAERS Safety Report 4879451-7 (Version None)
Quarter: 2005Q4

REPORT INFORMATION
  Report Type: 
  Country: None (occurrence: None)
  Receive Date: 20051209
  Receipt Date: 20050524
  Transmission Date: 20060501
  Serious: Yes (Hospitalization, Other)
  Sender: FDA-Public Use
  Company Number: 2013361

PATIENT
  Age: 30 Year
  Sex: Male
  Weight: 82.5 kg

DRUGS (26)
  1. OXYCONTIN [Suspect]
     Indication: PAIN
     Dosage: 10 MG
  2. OXYCONTIN [Suspect]
     Indication: PAIN
     Dosage: 20 MG, SEE TEXT
  3. OXYCONTIN [Suspect]
     Indication: PAIN
     Dosage: 40 MG, SEE TEXT
     Dates: start: 19990419, end: 20010405
  4. OXYCONTIN [Suspect]
     Indication: PAIN
     Dosage: 80 MG, SEE TEXT
     Dates: start: 19991207
  5. LORTAB [Concomitant]
  6. TYLOX [Concomitant]
  7. FLEXERIL [Concomitant]
  8. AMBIEN [Concomitant]
  9. VIAGRA [Concomitant]
  10. ELAVIL [Concomitant]
  11. CELEBREX [Concomitant]
  12. ROBAXIN [Concomitant]
  13. VIOXX [Concomitant]
  14. SOMA [Concomitant]
  15. ULTRAM [Concomitant]
  16. PREDNISONE [Concomitant]
  17. RESTORIL [Concomitant]
  18. DAYPRO [Concomitant]
  19. LORAZEPAM [Concomitant]
  20. METHYLPREDNISOLONE [Concomitant]
  21. NORTRIPTYLINE HCL [Concomitant]
  22. VALIUM [Concomitant]
  23. PEN-VEE K [Concomitant]
  24. AMOXICILLIN [Concomitant]
  25. XANAX [Concomitant]
  26. LORCET-HD [Concomitant]

REACTIONS (33)
  - ABDOMINAL PAIN [None]
  - ACCIDENT [None]
  - ANOREXIA [None]
  - ANXIETY [None]
  - ASTHENIA [None]
  - BLISTER [None]
  - DRUG ABUSER [None]
  - DRUG DEPENDENCE [None]
  - DRUG INEFFECTIVE [None]
  - DRUG TOLERANCE [None]
  - DRUG WITHDRAWAL SYNDROME [None]
  - DYSKINESIA [None]
  - DYSURIA [None]
  - EMOTIONAL DISTRESS [None]
  - ERECTILE DYSFUNCTION [None]
  - GASTRITIS [None]
  - GASTROINTESTINAL HAEMORRHAGE [None]
  - HYPERHIDROSIS [None]
  - INSOMNIA [None]
  - IRRITABILITY [None]
  - MOOD SWINGS [None]
  - MYALGIA [None]
  - NAUSEA [None]
  - NERVOUSNESS [None]
  - PAIN [None]
  - POLLAKIURIA [None]
  - SELF-INJURIOUS IDEATION [None]
  - TOOTH DISORDER [None]
  - TOOTHACHE [None]
  - URINARY INCONTINENCE [None]
  - URINARY RETENTION [None]
  - VOMITING [None]
  - WEIGHT DECREASED [None]
